FAERS Safety Report 8549966-9 (Version None)
Quarter: 2012Q3

REPORT INFORMATION
  Report Type: 
  Country: None (occurrence: None)
  Receive Date: 20120730
  Receipt Date: 20120720
  Transmission Date: 20120928
  Serious: Yes (Hospitalization)
  Sender: FDA-Public Use
  Company Number: US-BAYER-2012-039323

PATIENT
  Age: 42 Year
  Sex: Female
  Weight: 119.73 kg

DRUGS (10)
  1. IBUPROFEN [Concomitant]
     Dosage: UNK UNK, PRN
     Dates: start: 20070101
  2. NEXIUM [Concomitant]
     Dosage: 40 MG, UNK
  3. LEVOCETIRIZINE DIHYDROCHLORIDE [Concomitant]
     Dosage: 5 MG, UNK
  4. TYLENOL (CAPLET) [Concomitant]
     Indication: PAIN IN EXTREMITY
     Dosage: 500 MG, 2 TIMES A DAY
  5. DROSPIRENONE AND ETHINYL ESTRADIOL [Suspect]
     Indication: METRORRHAGIA
  6. AZITHROMYCIN [Concomitant]
     Dosage: 250 MG, UNK
  7. DROSPIRENONE AND ETHINYL ESTRADIOL [Suspect]
     Indication: ACNE
     Dosage: UNK
     Dates: start: 20070101, end: 20120127
  8. YAZ [Suspect]
     Indication: ACNE
     Dosage: UNK
     Dates: start: 20070101, end: 20120127
  9. YAZ [Suspect]
     Indication: DYSFUNCTIONAL UTERINE BLEEDING
  10. LISINOPRIL [Concomitant]
     Dosage: UNK
     Dates: start: 20080101

REACTIONS (3)
  - INJURY [None]
  - DEEP VEIN THROMBOSIS [None]
  - PAIN [None]
